FAERS Safety Report 5047552-9 (Version None)
Quarter: 2006Q3

REPORT INFORMATION
  Report Type: 
  Country: None (occurrence: None)
  Receive Date: 20060711
  Receipt Date: 20060627
  Transmission Date: 20061208
  Serious: Yes (Hospitalization, Other)
  Sender: FDA-Public Use
  Company Number: US-AMGEN-STX184610

PATIENT
  Sex: Female

DRUGS (1)
  1. ENBREL [Suspect]
     Indication: PSORIASIS
     Route: 058
     Dates: start: 20050627

REACTIONS (4)
  - BACK PAIN [None]
  - CARDIAC PACEMAKER INSERTION [None]
  - MOVEMENT DISORDER [None]
  - TOE DEFORMITY [None]
